FAERS Safety Report 9121072 (Version 2)
Quarter: 2013Q2

REPORT INFORMATION
  Report Type: Spontaneous
  Country: FR (occurrence: FR)
  Receive Date: 20130226
  Receipt Date: 20130404
  Transmission Date: 20140414
  Serious: Yes (Hospitalization)
  Sender: FDA-Public Use
  Company Number: FR-VERTEX PHARMACEUTICALS INC.-2013-002634

PATIENT
  Age: 51 Year
  Sex: Male
  Weight: 77 kg

DRUGS (7)
  1. INCIVO [Suspect]
     Indication: HEPATITIS C
     Dosage: TABLET: 1125 MG, BID
     Route: 048
     Dates: start: 20130107
  2. COPEGUS [Suspect]
     Indication: HEPATITIS C
     Dosage: DOSAGE FORM: UNSPECIFIED, 400 MG IN THE MORNING, 600MG IN THE EVENING
     Route: 048
     Dates: start: 20130107
  3. PEGASYS [Suspect]
     Indication: HEPATITIS C
     Dosage: DOSAGE FORM: UNSPECIFIED, MONDAY
     Route: 058
     Dates: start: 20130107
  4. DOLIPRANE [Suspect]
     Indication: INFLUENZA
     Dosage: DOSAGE FORM: UNSPECIFIED, 1-3 TIMES A DAY
     Route: 048
     Dates: start: 20130107
  5. NORSET [Suspect]
     Indication: DEPRESSION
     Dosage: DOSAGE FORM: UNSPECIFIED
     Route: 048
     Dates: start: 201208
  6. ATARAX [Concomitant]
     Indication: PRURITUS
     Dosage: DOSAGE FORM: UNSPECIFIED
     Route: 048
     Dates: start: 20130108
  7. LEVOCETIRIZINE [Concomitant]
     Indication: PRURITUS
     Dosage: DOSAGE FORM: UNSPECIFIED
     Route: 048
     Dates: start: 20130108

REACTIONS (5)
  - Paraesthesia [Unknown]
  - Influenza like illness [Unknown]
  - Pruritus [Recovered/Resolved]
  - Eczema [Recovered/Resolved]
  - Off label use [Unknown]
